FAERS Safety Report 8145396-2 (Version None)
Quarter: 2012Q1

REPORT INFORMATION
  Report Type: 
  Country: None (occurrence: None)
  Receive Date: 20120217
  Receipt Date: 20120209
  Transmission Date: 20120608
  Serious: Yes (Hospitalization)
  Sender: FDA-Public Use
  Company Number: US-JNJFOC-20120206251

PATIENT
  Sex: Female
  Weight: 17.7 kg

DRUGS (2)
  1. REMICADE [Suspect]
     Indication: CROHN'S DISEASE
     Route: 042
     Dates: start: 20101109
  2. BUDESONIDE [Concomitant]

REACTIONS (2)
  - CROHN'S DISEASE [None]
  - DRUG SPECIFIC ANTIBODY PRESENT [None]
